FAERS Safety Report 7534838 (Version 3)
Quarter: 2016Q2

REPORT INFORMATION
  Report Type: Spontaneous
  Country: US (occurrence: US)
  Receive Date: 20100810
  Receipt Date: 20160509
  Transmission Date: 20160815
  Serious: Yes (Life-Threatening, Hospitalization, Other)
  Sender: FDA-Public Use
  Company Number: US-PFIZER INC-2010095827

PATIENT
  Age: 50 Year
  Sex: Male
  Weight: 104 kg

DRUGS (4)
  1. METFORMIN [Concomitant]
     Active Substance: METFORMIN HYDROCHLORIDE
     Indication: DIABETES MELLITUS
     Dosage: 1000 MG, 2X/DAY
     Route: 048
     Dates: start: 2000
  2. GLIPIZIDE. [Concomitant]
     Active Substance: GLIPIZIDE
     Indication: DIABETES MELLITUS
     Dosage: 2 MG, 2X/DAY
  3. VFEND [Suspect]
     Active Substance: VORICONAZOLE
     Indication: COCCIDIOIDOMYCOSIS
     Dosage: 400 MG, DAILY
     Route: 048
     Dates: start: 2000
  4. ACTOS [Concomitant]
     Active Substance: PIOGLITAZONE HYDROCHLORIDE
     Indication: DIABETES MELLITUS
     Dosage: 20 MG, 2X/DAY
     Route: 048

REACTIONS (7)
  - Photosensitivity reaction [Not Recovered/Not Resolved]
  - Fatigue [Unknown]
  - Upper respiratory tract congestion [Unknown]
  - Lower extremity mass [Recovering/Resolving]
  - Mass [Unknown]
  - Pain [Not Recovered/Not Resolved]
  - Product use issue [Unknown]

NARRATIVE: CASE EVENT DATE: 2000
